FAERS Safety Report 13463841 (Version 1)
Quarter: 2017Q2

REPORT INFORMATION
  Report Type: Spontaneous
  Country: US (occurrence: US)
  Receive Date: 20170420
  Receipt Date: 20170420
  Transmission Date: 20170830
  Serious: Yes (Other)
  Sender: FDA-Public Use
  Company Number: US-ROCHE-701340

PATIENT
  Age: 16 Year
  Sex: Male
  Weight: 77.1 kg

DRUGS (5)
  1. ACCUTANE [Suspect]
     Active Substance: ISOTRETINOIN
     Dosage: 2 IN MORNING AND 3 IN EVENING; STRENGTH: 20 MG
     Route: 048
     Dates: start: 20000425, end: 200012
  2. TETRACYCLINE [Concomitant]
     Active Substance: TETRACYCLINE
     Route: 065
  3. CLARITIN [Concomitant]
     Active Substance: LORATADINE
     Route: 065
  4. ACCUTANE [Suspect]
     Active Substance: ISOTRETINOIN
     Indication: ACNE
     Route: 048
     Dates: start: 19990414, end: 199911
  5. ZYRTEC [Concomitant]
     Active Substance: CETIRIZINE HYDROCHLORIDE
     Route: 065

REACTIONS (13)
  - Colitis ulcerative [Unknown]
  - Dry skin [Unknown]
  - Dizziness [Recovering/Resolving]
  - Localised infection [Unknown]
  - Rash [Unknown]
  - Blood cholesterol increased [Recovered/Resolved]
  - Headache [Recovering/Resolving]
  - Guttate psoriasis [Unknown]
  - Nephrolithiasis [Unknown]
  - Inflammatory bowel disease [Unknown]
  - Depression [Unknown]
  - Lip dry [Unknown]
  - Blood triglycerides increased [Recovered/Resolved]

NARRATIVE: CASE EVENT DATE: 19991003
